FAERS Safety Report 8347460-1 (Version None)
Quarter: 2012Q2

REPORT INFORMATION
  Report Type: 
  Country: None (occurrence: None)
  Receive Date: 20120509
  Receipt Date: 20120217
  Transmission Date: 20120825
  Serious: No
  Sender: FDA-Public Use
  Company Number: US-GLAXOSMITHKLINE-A0966406A

PATIENT
  Age: 25 Year
  Sex: Female

DRUGS (2)
  1. VELTIN [Suspect]
     Indication: ACNE
     Dosage: 1APP TWICE PER DAY
     Route: 061
     Dates: start: 20111101
  2. NO CONCURRENT MEDICATION [Concomitant]

REACTIONS (2)
  - APPLICATION SITE REACTION [None]
  - OVERDOSE [None]
